FAERS Safety Report 4535703-1 (Version None)
Quarter: 2004Q4

REPORT INFORMATION
  Report Type: 
  Country: None (occurrence: None)
  Receive Date: 20041223
  Receipt Date: 20031211
  Transmission Date: 20050328
  Serious: No
  Sender: FDA-Public Use
  Company Number: US-GLAXOSMITHKLINE-A0442765A

PATIENT
  Sex: Male

DRUGS (7)
  1. FLONASE [Suspect]
     Dosage: 2SPR TWICE PER DAY
     Route: 045
     Dates: start: 20030801, end: 20031015
  2. ZOCOR [Concomitant]
  3. NORVASC [Concomitant]
  4. MULTI-VITAMINS [Concomitant]
  5. FOLIC ACID [Concomitant]
  6. ASPIRIN [Concomitant]
  7. COQ10 [Concomitant]

REACTIONS (2)
  - FACIAL PAIN [None]
  - SINUS PAIN [None]
